FAERS Safety Report 23885970 (Version 1)
Quarter: 2024Q2

REPORT INFORMATION
  Report Type: Report from Study
  Country: MY (occurrence: MY)
  Receive Date: 20240522
  Receipt Date: 20240522
  Transmission Date: 20240716
  Serious: Yes (Death, Hospitalization)
  Sender: FDA-Public Use
  Company Number: MY-Eisai-EC-2024-166208

PATIENT
  Age: 72 Year
  Sex: Female

DRUGS (1)
  1. LENVIMA [Suspect]
     Active Substance: LENVATINIB
     Indication: Hepatocellular carcinoma
     Route: 048
     Dates: start: 2023, end: 2023

REACTIONS (3)
  - Malignant neoplasm progression [Fatal]
  - Gastric dilatation [Unknown]
  - Generalised oedema [Unknown]

NARRATIVE: CASE EVENT DATE: 20230101
